FAERS Safety Report 4505225-2 (Version None)
Quarter: 2004Q4

REPORT INFORMATION
  Report Type: 
  Country: None (occurrence: None)
  Receive Date: 20041116
  Receipt Date: 20041010
  Transmission Date: 20050328
  Serious: Yes (Death)
  Sender: FDA-Public Use
  Company Number: M2004.1654

PATIENT
  Age: 21 Year
  Sex: Female

DRUGS (5)
  1. MIRTAZAPINE [Suspect]
  2. ZOLPIDEM [Suspect]
  3. DEXTROPROPOXYPHENE [Suspect]
  4. PARACETAMOL [Suspect]
  5. VENLAFAXINE [Suspect]

REACTIONS (1)
  - DEATH [None]
